FAERS Safety Report 6884810-7 (Version None)
Quarter: 2010Q3

REPORT INFORMATION
  Report Type: 
  Country: None (occurrence: None)
  Receive Date: 20100729
  Receipt Date: 20070928
  Transmission Date: 20110219
  Serious: No
  Sender: FDA-Public Use
  Company Number: US-PFIZER INC-2007080528

PATIENT
  Sex: Male
  Weight: 88.6 kg

DRUGS (2)
  1. CELEBREX [Suspect]
     Indication: PAIN IN EXTREMITY
     Route: 048
     Dates: start: 20070924
  2. ATENOLOL [Concomitant]
     Indication: HYPERTENSION

REACTIONS (2)
  - PAIN [None]
  - RESTLESSNESS [None]
